FAERS Safety Report 25687891 (Version 3)
Quarter: 2025Q4

REPORT INFORMATION
  Report Type: Report from Study
  Country: US (occurrence: US)
  Receive Date: 20250817
  Receipt Date: 20251225
  Transmission Date: 20260119
  Serious: Yes (Hospitalization)
  Sender: ABBVIE
  Company Number: US-ABBVIE-6415272

PATIENT
  Age: 79 Year
  Sex: Female

DRUGS (1)
  1. CREON [Suspect]
     Active Substance: PANCRELIPASE AMYLASE\PANCRELIPASE LIPASE\PANCRELIPASE PROTEASE
     Indication: Pancreatic failure
     Route: 048
     Dates: start: 20250624

REACTIONS (5)
  - Pneumonia aspiration [Recovering/Resolving]
  - Haemoglobin decreased [Unknown]
  - Multiple fractures [Recovering/Resolving]
  - Neuropathy peripheral [Recovering/Resolving]
  - Fall [Recovering/Resolving]

NARRATIVE: CASE EVENT DATE: 20250101
